FAERS Safety Report 7435686-0 (Version None)
Quarter: 2011Q2

REPORT INFORMATION
  Report Type: 
  Country: None (occurrence: None)
  Receive Date: 20110425
  Receipt Date: 20110415
  Transmission Date: 20111010
  Serious: Yes (Hospitalization, Other)
  Sender: FDA-Public Use
  Company Number: PHHY2011US32125

PATIENT
  Age: 16 Year
  Sex: Male

DRUGS (4)
  1. FLUOXETINE [Suspect]
     Dosage: 10 MG, UNK
  2. DEXTROMETHORPHAN [Interacting]
  3. LORATADINE [Concomitant]
     Indication: SEASONAL ALLERGY
  4. LANSOPRAZOLE [Concomitant]
     Indication: GASTROOESOPHAGEAL REFLUX DISEASE

REACTIONS (10)
  - MENTAL STATUS CHANGES [None]
  - AGITATION [None]
  - MYDRIASIS [None]
  - FLUSHING [None]
  - DRUG INTERACTION [None]
  - SKIN WARM [None]
  - SPEECH DISORDER [None]
  - MYOCLONUS [None]
  - CONFUSIONAL STATE [None]
  - SEROTONIN SYNDROME [None]
